FAERS Safety Report 8958655 (Version 1)
Quarter: 2012Q4

REPORT INFORMATION
  Report Type: Spontaneous
  Country: US (occurrence: None)
  Receive Date: 20121206
  Receipt Date: 20121206
  Transmission Date: 20130627
  Serious: Yes (Hospitalization)
  Sender: FDA-Public Use
  Company Number: None

PATIENT
  Age: 33 Year
  Sex: Female
  Weight: 116.12 kg

DRUGS (3)
  1. LUTERA [Suspect]
     Indication: DYSFUNCTIONAL UTERINE BLEEDING
     Dosage: one pill everyday po
     Route: 048
     Dates: start: 20120821, end: 20121026
  2. LOVINOX [Concomitant]
  3. WARFRIN [Concomitant]

REACTIONS (1)
  - Pulmonary thrombosis [None]
